FAERS Safety Report 17931040 (Version 1)
Quarter: 2020Q2

REPORT INFORMATION
  Report Type: Spontaneous
  Country: IT (occurrence: IT)
  Receive Date: 20200623
  Receipt Date: 20200623
  Transmission Date: 20200714
  Serious: Yes (Other)
  Sender: FDA-Public Use
  Company Number: NVSC2020IT099400

PATIENT
  Age: 79 Year
  Sex: Male

DRUGS (1)
  1. AMIODARONE [Suspect]
     Active Substance: AMIODARONE
     Indication: ATRIAL FIBRILLATION
     Dosage: 400 MG, QD
     Route: 065

REACTIONS (6)
  - Pulmonary toxicity [Unknown]
  - Dyspnoea exertional [Unknown]
  - Cough [Unknown]
  - Pulmonary mass [Recovering/Resolving]
  - Interstitial lung disease [Recovering/Resolving]
  - Lung disorder [Recovering/Resolving]
